FAERS Safety Report 12972231 (Version 2)
Quarter: 2016Q4

REPORT INFORMATION
  Report Type: Spontaneous
  Country: IR (occurrence: IR)
  Receive Date: 20161124
  Receipt Date: 20161202
  Transmission Date: 20170207
  Serious: Yes (Death)
  Sender: FDA-Public Use
  Company Number: IR-GE HEALTHCARE MEDICAL DIAGNOSTICS-VISP-PR-1611S-0661

PATIENT
  Age: 57 Year
  Sex: Female

DRUGS (2)
  1. VISIPAQUE [Suspect]
     Active Substance: IODIXANOL
     Indication: LUNG NEOPLASM MALIGNANT
     Route: 042
     Dates: start: 20160502, end: 20160502
  2. VISIPAQUE [Suspect]
     Active Substance: IODIXANOL
     Indication: DIAGNOSTIC PROCEDURE

REACTIONS (2)
  - Cardio-respiratory arrest [Fatal]
  - Cyanosis [Unknown]

NARRATIVE: CASE EVENT DATE: 20160502
